FAERS Safety Report 4370148-9 (Version None)
Quarter: 2004Q2

REPORT INFORMATION
  Report Type: 
  Country: None (occurrence: None)
  Receive Date: 20040603
  Receipt Date: 20040423
  Transmission Date: 20050107
  Serious: No
  Sender: FDA-Public Use
  Company Number: US-BRISTOL-MYERS SQUIBB COMPANY-12569737

PATIENT
  Age: 12 Year
  Sex: Female

DRUGS (3)
  1. ABILIFY [Suspect]
     Indication: AFFECTIVE DISORDER
     Dosage: 2.5 MG IN AM AND 5 MG IN PM
     Route: 048
  2. DEPAKOTE [Concomitant]
  3. SEROQUEL [Concomitant]
     Dosage: 200 MG AND 400 MG

REACTIONS (1)
  - HYPERGLYCAEMIA [None]
